FAERS Safety Report 8064570-7 (Version None)
Quarter: 2012Q1

REPORT INFORMATION
  Report Type: 
  Country: None (occurrence: None)
  Receive Date: 20120123
  Receipt Date: 20120112
  Transmission Date: 20120608
  Serious: Yes (Hospitalization)
  Sender: FDA-Public Use
  Company Number: BR-ASTRAZENECA-2012SE02633

PATIENT
  Age: 63 Year
  Sex: Male

DRUGS (5)
  1. METOPROLOL SUCCINATE [Suspect]
     Route: 048
     Dates: start: 20111201
  2. BRILINTA [Suspect]
     Route: 048
     Dates: start: 20111201
  3. CRESTOR [Suspect]
     Route: 048
     Dates: start: 20111201
  4. UNKNOWN CORTICOID [Concomitant]
     Indication: CROHN'S DISEASE
     Route: 048
     Dates: start: 20070101
  5. GLICAZIDE [Concomitant]
     Indication: BLOOD GLUCOSE INCREASED
     Route: 048
     Dates: start: 20111001

REACTIONS (1)
  - CARDIOMYOPATHY [None]
